FAERS Safety Report 7647351-5 (Version None)
Quarter: 2011Q3

REPORT INFORMATION
  Report Type: 
  Country: None (occurrence: None)
  Receive Date: 20110801
  Receipt Date: 20110725
  Transmission Date: 20111222
  Serious: Yes (Hospitalization, Other)
  Sender: FDA-Public Use
  Company Number: FR-ROCHE-792496

PATIENT
  Sex: Male

DRUGS (5)
  1. TRANSIPEG [Concomitant]
  2. PANTOPRAZOLE [Concomitant]
  3. PREVISCAN [Interacting]
     Dosage: FREQUENCY: DAILY
     Route: 048
     Dates: end: 20110704
  4. ROCEPHIN [Suspect]
     Dosage: FREQUENCY: DAILY
     Route: 030
     Dates: start: 20110629, end: 20110704
  5. BISOPROLOL FUMARATE [Concomitant]

REACTIONS (2)
  - INTERNATIONAL NORMALISED RATIO INCREASED [None]
  - DRUG INTERACTION [None]
